FAERS Safety Report 8477635-2 (Version None)
Quarter: 2012Q2

REPORT INFORMATION
  Report Type: 
  Country: None (occurrence: None)
  Receive Date: 20120618
  Receipt Date: 20120604
  Transmission Date: 20120825
  Serious: Yes (Hospitalization)
  Sender: FDA-Public Use
  Company Number: 7113897

PATIENT
  Age: 62 Year
  Sex: Female

DRUGS (20)
  1. FLUOROURACIL [Suspect]
     Indication: COLON CANCER METASTATIC
     Dosage: INTRAVENOUS (NOT OTHERWISE SPECIFIED)
     Route: 042
  2. SODIUM CHLORIDE (SODIUM CHLORDE) [Concomitant]
  3. ZOPICLONE (ZOPICLONE) [Concomitant]
  4. SMECTA (SMECTA /00837601/) (DIOSMECTAL) [Concomitant]
  5. TRANSIPEG (MACROGOL) (MACROGOL) [Concomitant]
  6. LEVOTHYROXINE SODIUM [Suspect]
     Indication: HYPOTHYROIDISM
     Dosage: SEE IMAGE
     Route: 048
     Dates: start: 20120203, end: 20120213
  7. LEVOTHYROXINE SODIUM [Suspect]
     Indication: HYPOTHYROIDISM
     Dosage: SEE IMAGE
     Route: 048
     Dates: start: 20111227, end: 20120202
  8. LEVOTHYROXINE SODIUM [Suspect]
     Indication: HYPOTHYROIDISM
     Dosage: SEE IMAGE
     Route: 048
     Dates: start: 20120214, end: 20120224
  9. LEVOTHYROXINE SODIUM [Suspect]
     Indication: HYPOTHYROIDISM
     Dosage: SEE IMAGE
     Route: 048
     Dates: start: 20111126, end: 20111226
  10. OXALIPLATIN [Suspect]
     Indication: COLON CANCER METASTATIC
     Dosage: INTRAVENOUS (NOT OTHERWISE SPECIFIED)
     Route: 042
  11. FRESUBIN (FRESUBIN) [Concomitant]
  12. EUROBIOL (PANCREATIN) (PANCREATIN EXTRACT) [Concomitant]
  13. LOPERAMIDE [Concomitant]
  14. LEVOTHYROXINE SODIUM [Suspect]
     Indication: HYPOTHYROIDISM
     Dosage: SEE IMAGE
     Route: 048
     Dates: start: 20111126, end: 20111128
  15. LEVOTHYROXINE SODIUM [Suspect]
     Indication: HYPOTHYROIDISM
     Dosage: SEE IMAGE
     Route: 048
     Dates: start: 20111128, end: 20111206
  16. LEVOTHYROXINE SODIUM [Suspect]
     Indication: HYPOTHYROIDISM
     Dosage: SEE IMAGE
     Route: 048
     Dates: start: 20111207, end: 20111226
  17. LEVOTHYROXINE SODIUM [Suspect]
     Indication: HYPOTHYROIDISM
     Dosage: SEE IMAGE
     Route: 048
     Dates: start: 20110110, end: 20120202
  18. IODINATED RADIOGRAPHIC CONTRAST AGENTS(CONTRAST MEDIA) (SOLUTION FOR I [Suspect]
     Indication: INVESTIGATION
  19. POTASSIUM (POTASSIUM) (POTASSIUM) [Concomitant]
  20. ATHYMIL (MIANSERIN HYDROCHLORIDE) (MIANSERIN) [Concomitant]

REACTIONS (4)
  - DRUG EFFECT DECREASED [None]
  - HYPOTHYROIDISM [None]
  - HYPONATRAEMIA [None]
  - HYPOKALAEMIA [None]
